FAERS Safety Report 5957470-7 (Version None)
Quarter: 2008Q4

REPORT INFORMATION
  Report Type: 
  Country: None (occurrence: None)
  Receive Date: 20081114
  Receipt Date: 20081106
  Transmission Date: 20090506
  Serious: Yes (Hospitalization)
  Sender: FDA-Public Use
  Company Number: 2008SP022790

PATIENT
  Age: 57 Year
  Sex: Male

DRUGS (2)
  1. RIBAVIRIN [Suspect]
     Indication: HEPATITIS C
     Dosage: PO
     Route: 048
  2. PEGASYS [Suspect]
     Indication: HEPATITIS C

REACTIONS (9)
  - APHONIA [None]
  - DYSPHAGIA [None]
  - EPIGLOTTITIS [None]
  - HYPOPHAGIA [None]
  - LEUKOPENIA [None]
  - NECK PAIN [None]
  - PHARYNGEAL ERYTHEMA [None]
  - STAPHYLOCOCCAL INFECTION [None]
  - SYNCOPE [None]
